FAERS Safety Report 25600112 (Version 1)
Quarter: 2025Q3

REPORT INFORMATION
  Report Type: Spontaneous
  Country: CA (occurrence: CA)
  Receive Date: 20250724
  Receipt Date: 20250724
  Transmission Date: 20251020
  Serious: Yes (Other)
  Sender: NOVARTIS
  Company Number: CA-002147023-NVSC2025CA116090

PATIENT
  Sex: Male

DRUGS (3)
  1. IMATINIB [Suspect]
     Active Substance: IMATINIB
     Indication: Acute lymphocytic leukaemia
     Route: 065
     Dates: start: 20250601, end: 20250605
  2. DASATINIB [Concomitant]
     Active Substance: DASATINIB
     Indication: Acute lymphocytic leukaemia
     Dosage: 100 MG, QD
     Route: 065
     Dates: start: 20250606, end: 20250627
  3. PONATINIB [Concomitant]
     Active Substance: PONATINIB
     Indication: Acute lymphocytic leukaemia
     Dosage: 30 MG, QD
     Route: 065
     Dates: start: 20250701, end: 20250717

REACTIONS (1)
  - Gastrointestinal toxicity [Unknown]
